FAERS Safety Report 8920372 (Version 1)
Quarter: 2012Q4

REPORT INFORMATION
  Report Type: 
  Country: BR (occurrence: BR)
  Receive Date: 20121122
  Receipt Date: 20121122
  Transmission Date: 20130627
  Serious: Yes (Other)
  Sender: FDA-Public Use
  Company Number: PHHY2012BR101075

PATIENT
  Age: 52 Year
  Sex: Female
  Weight: 62 kg

DRUGS (2)
  1. CODATEN [Suspect]
     Indication: PAIN
     Dosage: 1 DF, each 8 to 8 hours
     Route: 048
     Dates: end: 20121102
  2. EUTIROX [Concomitant]
     Indication: HYPOTHYROIDISM
     Dosage: 50 mg, QD
     Route: 048

REACTIONS (3)
  - Dysstasia [Unknown]
  - Pain [Recovering/Resolving]
  - Constipation [Recovered/Resolved]
